FAERS Safety Report 6794569-X (Version None)
Quarter: 2010Q2

REPORT INFORMATION
  Report Type: 
  Country: None (occurrence: None)
  Receive Date: 20100625
  Receipt Date: 20100616
  Transmission Date: 20101027
  Serious: Yes (Hospitalization)
  Sender: FDA-Public Use
  Company Number: DE-PFIZER INC-2009241054

PATIENT
  Age: 67 Year
  Sex: Female
  Weight: 70 kg

DRUGS (16)
  1. AMPICILLIN AND SULBACTAM [Suspect]
     Indication: ARTHRITIS
     Dosage: 1.5 G, 2X/DAY
     Route: 042
     Dates: start: 20090501, end: 20090501
  2. AMPICILLIN AND SULBACTAM [Suspect]
     Dosage: 1.5 G, 1X/DAY
     Route: 042
     Dates: start: 20090502, end: 20090502
  3. GENTAMYCIN-MP [Suspect]
     Indication: ARTHRITIS
     Dosage: 240 MG, SINGLE
     Route: 042
     Dates: start: 20090501, end: 20090501
  4. PREDNISOLUT [Suspect]
     Indication: HYPERSENSITIVITY
     Dosage: 100 MG, 1X/DAY
     Route: 042
     Dates: start: 20090502, end: 20090507
  5. PREDNISOLUT [Suspect]
     Dosage: 100 MG, 1X/DAY
     Route: 042
     Dates: start: 20080508, end: 20090512
  6. RADEDORM [Suspect]
     Indication: SLEEP DISORDER
     Dosage: 5 MG, SINGLE
     Route: 048
     Dates: start: 20090506, end: 20090506
  7. PREDNISOLONE [Concomitant]
     Indication: HYPERSENSITIVITY
     Dosage: 75 MG, 1X/DAY
     Route: 048
     Dates: start: 20090513
  8. ADVANTAN [Concomitant]
     Indication: HYPERSENSITIVITY
     Dosage: 1 DF, 2X/DAY
     Route: 062
     Dates: start: 20090504, end: 20090507
  9. AMLODIPINE [Concomitant]
     Indication: HYPERTENSION
     Dosage: 5 MG, 1X/DAY
  10. COTRIMHEXAL FORTE [Concomitant]
     Indication: ARTHRITIS
     Dosage: 1 DF, 2X/DAY
     Route: 048
     Dates: start: 20090502, end: 20090507
  11. FENISTIL [Concomitant]
     Indication: HYPERSENSITIVITY
     Dosage: 4 MG, 1X/DAY
     Route: 048
     Dates: start: 20090502, end: 20090512
  12. PROTEIN SUPPLEMENTS [Concomitant]
     Indication: MEDICAL DIET
     Dosage: 200 ML, 2X/DAY
     Route: 048
     Dates: start: 20090504, end: 20090507
  13. IBUPROFEN TABLETS [Concomitant]
     Indication: ARTHRITIS
     Dosage: 800 MG, 2X/DAY
     Route: 048
     Dates: start: 20090501, end: 20090505
  14. MOBEC ^BOEHRINGER INGELHEIM^ [Concomitant]
     Indication: ARTHRITIS
     Dosage: 7.5 MG, 1X/DAY
     Route: 048
     Dates: start: 20080401, end: 20090510
  15. PANTOZOL [Concomitant]
     Indication: PROPHYLAXIS
     Dosage: 40 MG, 1X/DAY
     Route: 048
     Dates: start: 20090501
  16. TILIDINE [Concomitant]
     Indication: ARTHRITIS
     Dosage: 20 GTT, 4X/DAY
     Route: 048
     Dates: start: 20090430, end: 20090510

REACTIONS (3)
  - ANGIOEDEMA [None]
  - DRUG HYPERSENSITIVITY [None]
  - HYPERGLYCAEMIA [None]
